FAERS Safety Report 8182714-3 (Version None)
Quarter: 2012Q1

REPORT INFORMATION
  Report Type: 
  Country: None (occurrence: None)
  Receive Date: 20120305
  Receipt Date: 20120228
  Transmission Date: 20120608
  Serious: No
  Sender: FDA-Public Use
  Company Number: US-PFIZER INC-2012053762

PATIENT
  Sex: Female
  Weight: 80 kg

DRUGS (9)
  1. ESOMEPRAZOLE SODIUM [Concomitant]
     Indication: DYSPEPSIA
     Dosage: 40 MG, UNK
  2. TRILIPIX [Suspect]
     Indication: BLOOD TRIGLYCERIDES
     Dosage: 145 MG, UNK
  3. BISELECT [Concomitant]
     Indication: HYPERTENSION
     Dosage: 10/6.25
  4. LIPITOR [Suspect]
     Indication: PRODUCT USED FOR UNKNOWN INDICATION
     Dosage: 10 MG, UNK
     Dates: start: 20111101, end: 20111223
  5. HYDROCHLOROTHIAZIDE [Concomitant]
     Indication: HYPERTENSION
     Dosage: 25 MG, UNK
  6. AMLODIPINE BESILATE [Concomitant]
     Indication: HYPERTENSION
     Dosage: 10 MG, UNK
  7. LOSARTAN POTASSIUM AND HYDROCHLOROTHIAZIDE [Concomitant]
     Dosage: 100/25
  8. CALCIUM CARBONATE [Concomitant]
     Dosage: UNK
  9. CITALOPRAM [Concomitant]
     Indication: ANXIETY
     Dosage: 40 MG, UNK

REACTIONS (3)
  - DIARRHOEA [None]
  - MEDICATION RESIDUE [None]
  - BLOOD TRIGLYCERIDES INCREASED [None]
